FAERS Safety Report 10927855 (Version 2)
Quarter: 2015Q1

REPORT INFORMATION
  Report Type: Report from Study
  Country: BR (occurrence: BR)
  Receive Date: 20150319
  Receipt Date: 20150326
  Transmission Date: 20150721
  Serious: Yes (Death, Hospitalization)
  Sender: FDA-Public Use
  Company Number: PHHY2015BR027895

PATIENT
  Age: 46 Year
  Sex: Male
  Weight: 67 kg

DRUGS (3)
  1. LDK378 [Suspect]
     Active Substance: CERITINIB
     Indication: NEOPLASM
     Dosage: 600 MG, QD
     Route: 048
     Dates: start: 20130827
  2. AVASTIN [Concomitant]
     Active Substance: BEVACIZUMAB
     Indication: RADIATION NECROSIS
     Dosage: 5 MG/KG, UNK
     Route: 065
     Dates: start: 20141126
  3. LDK378 [Suspect]
     Active Substance: CERITINIB
     Dosage: 2400 MG, QD
     Route: 048
     Dates: end: 20150314

REACTIONS (10)
  - Muscular weakness [Recovered/Resolved]
  - Vertigo [Recovered/Resolved]
  - Staphylococcal infection [Recovered/Resolved]
  - Pulmonary embolism [Fatal]
  - Device related infection [Recovered/Resolved]
  - Acute respiratory failure [Fatal]
  - Balance disorder [Recovered/Resolved]
  - Myalgia [Recovered/Resolved]
  - Dizziness [Recovered/Resolved]
  - Asthenia [Recovered/Resolved]

NARRATIVE: CASE EVENT DATE: 20141229
